FAERS Safety Report 16120835 (Version 2)
Quarter: 2019Q2

REPORT INFORMATION
  Report Type: Spontaneous
  Country: NL (occurrence: NL)
  Receive Date: 20190327
  Receipt Date: 20190403
  Transmission Date: 20190711
  Serious: Yes (Death)
  Sender: FDA-Public Use
  Company Number: NL-ROCHE-2284826

PATIENT
  Age: 75 Year
  Sex: Male

DRUGS (4)
  1. LEVETIRACETAM. [Concomitant]
     Active Substance: LEVETIRACETAM
  2. INSULIN [Concomitant]
     Active Substance: INSULIN NOS
  3. COTELLIC [Suspect]
     Active Substance: COBIMETINIB
     Indication: METASTATIC MALIGNANT MELANOMA
     Route: 065
     Dates: start: 20180713
  4. ZELBORAF [Suspect]
     Active Substance: VEMURAFENIB
     Indication: METASTATIC MALIGNANT MELANOMA
     Dosage: WAS GIVEN AS SUSPENSION
     Route: 065
     Dates: start: 20180713

REACTIONS (3)
  - Off label use [Unknown]
  - Metastatic malignant melanoma [Fatal]
  - Product preparation issue [Unknown]

NARRATIVE: CASE EVENT DATE: 20190312
